FAERS Safety Report 25149004 (Version 2)
Quarter: 2025Q2

REPORT INFORMATION
  Report Type: Spontaneous
  Country: US (occurrence: US)
  Receive Date: 20250402
  Receipt Date: 20250411
  Transmission Date: 20250717
  Serious: Yes (Death)
  Sender: RANBAXY
  Company Number: US-SUN PHARMACEUTICAL INDUSTRIES LTD-2025R1-501492

PATIENT
  Age: 53 Year
  Sex: Female

DRUGS (2)
  1. DOCETAXEL [Suspect]
     Active Substance: DOCETAXEL
     Indication: Angiosarcoma
     Route: 065
  2. GEMCITABINE [Suspect]
     Active Substance: GEMCITABINE
     Indication: Angiosarcoma
     Route: 065

REACTIONS (1)
  - Neoplasm progression [Fatal]
